FAERS Safety Report 11680830 (Version 1)
Quarter: 2015Q4

REPORT INFORMATION
  Report Type: Spontaneous
  Country: IT (occurrence: IT)
  Receive Date: 20151029
  Receipt Date: 20151029
  Transmission Date: 20160304
  Serious: Yes (Other)
  Sender: FDA-Public Use
  Company Number: IT-SUN PHARMACEUTICAL INDUSTRIES LTD-2014RR-104766

PATIENT

DRUGS (1)
  1. PARACETAMOL [Suspect]
     Active Substance: ACETAMINOPHEN
     Indication: ANALGESIC THERAPY
     Dosage: 1 DF, DAILY
     Route: 048
     Dates: start: 20130615, end: 20130615

REACTIONS (4)
  - Dry mouth [Unknown]
  - Laryngeal oedema [Unknown]
  - Pharyngeal oedema [Unknown]
  - Agitation [Unknown]

NARRATIVE: CASE EVENT DATE: 20130615
